FAERS Safety Report 8229243-6 (Version None)
Quarter: 2012Q1

REPORT INFORMATION
  Report Type: 
  Country: None (occurrence: None)
  Receive Date: 20120322
  Receipt Date: 20120319
  Transmission Date: 20120608
  Serious: No
  Sender: FDA-Public Use
  Company Number: US-PFIZER INC-2012071080

PATIENT
  Sex: Male

DRUGS (5)
  1. NEURONTIN [Suspect]
     Indication: AFFECTIVE DISORDER
     Dosage: UNK
  2. BUFFERIN [Concomitant]
     Indication: PAIN IN EXTREMITY
     Dosage: UNK
  3. NEURONTIN [Suspect]
     Indication: DEPRESSION
     Dosage: 9000 MG, PER DAY
  4. NEURONTIN [Suspect]
     Indication: MOOD ALTERED
  5. PERCODAN-DEMI [Concomitant]
     Dosage: UNK

REACTIONS (2)
  - DRUG TOLERANCE INCREASED [None]
  - SOMNOLENCE [None]
